FAERS Safety Report 10041794 (Version 1)
Quarter: 2014Q1

REPORT INFORMATION
  Report Type: Spontaneous
  Country: US (occurrence: US)
  Receive Date: 20140327
  Receipt Date: 20140327
  Transmission Date: 20141002
  Serious: No
  Sender: FDA-Public Use
  Company Number: US-PFIZER INC-2014084827

PATIENT
  Age: 24 Year
  Sex: Female
  Weight: 90.7 kg

DRUGS (1)
  1. LYRICA [Suspect]
     Indication: COMPLEX REGIONAL PAIN SYNDROME
     Dosage: 300 MG, DAILY
     Dates: start: 201305, end: 201401

REACTIONS (3)
  - Vision blurred [Unknown]
  - Feeling abnormal [Unknown]
  - Visual impairment [Unknown]
